FAERS Safety Report 9591850 (Version 2)
Quarter: 2013Q4

REPORT INFORMATION
  Report Type: Spontaneous
  Country: US (occurrence: US)
  Receive Date: 20131004
  Receipt Date: 20131004
  Transmission Date: 20140711
  Serious: Yes (Other)
  Sender: FDA-Public Use
  Company Number: US-AMGEN-USASP2012074503

PATIENT
  Age: 47 Year
  Sex: Male
  Weight: 99.77 kg

DRUGS (7)
  1. ENBREL [Suspect]
     Indication: PSORIATIC ARTHROPATHY
     Dosage: UNK
     Route: 058
  2. ENBREL [Suspect]
     Dosage: UNK
  3. HUMIRA [Concomitant]
     Dosage: UNK
  4. SIMPONI [Concomitant]
     Dosage: UNK
  5. TRAMADOL HCL [Concomitant]
     Dosage: 50 MG, UNK
  6. AMBIEN [Concomitant]
     Dosage: 10 MG, UNK
  7. TYLENOL                            /00020001/ [Concomitant]
     Dosage: 500 MG, UNK

REACTIONS (7)
  - Malignant melanoma [Unknown]
  - Arthralgia [Unknown]
  - Joint stiffness [Recovered/Resolved]
  - Pain [Unknown]
  - Drug ineffective [Unknown]
  - Headache [Unknown]
  - Sinusitis [Unknown]
